FAERS Safety Report 21157801 (Version 2)
Quarter: 2022Q4

REPORT INFORMATION
  Report Type: Spontaneous
  Country: FR (occurrence: FR)
  Receive Date: 20220801
  Receipt Date: 20221007
  Transmission Date: 20230113
  Serious: Yes (Hospitalization)
  Sender: FDA-Public Use
  Company Number: FR-VERTEX PHARMACEUTICALS-2022-008986

PATIENT
  Age: 16 Year
  Sex: Female
  Weight: 51 kg

DRUGS (12)
  1. ELEXACAFTOR\IVACAFTOR\TEZACAFTOR [Suspect]
     Active Substance: ELEXACAFTOR\IVACAFTOR\TEZACAFTOR
     Indication: Cystic fibrosis
     Dosage: 2 TABLETS (IVACAFTOR/ TEZACAFTOR/ ELEXACAFTOR) IN THE MORNING
     Route: 048
     Dates: start: 20220325
  2. KALYDECO [Suspect]
     Active Substance: IVACAFTOR
     Indication: Cystic fibrosis
     Dosage: (IVACAFTTOR)1 TABLET IN THE EVENING
     Route: 048
     Dates: start: 20220325, end: 2022
  3. VENTOLIN [Concomitant]
     Active Substance: ALBUTEROL SULFATE
     Indication: Cough
     Dosage: SPRAY: 2 PUFFS 4 TIMES PER DAY IF COUGH
     Route: 055
  4. SERETIDE [Concomitant]
     Active Substance: FLUTICASONE PROPIONATE\SALMETEROL XINAFOATE
     Dosage: 1 INHALATION MORNING AND EVENING
     Route: 055
  5. PULMOZYME [Concomitant]
     Active Substance: DORNASE ALFA
     Dosage: 2,500 U/2.5 ML: 1 NEBULIZATION PER DAY BEFORE PHYSICAL THERAPY
     Route: 055
  6. POLYETHYLENE GLYCOL 4000 [Concomitant]
     Active Substance: POLYETHYLENE GLYCOL 4000
     Dosage: 2 SACHETS IN THE MORNING
  7. CREON [Concomitant]
     Active Substance: PANCRELIPASE AMYLASE\PANCRELIPASE LIPASE\PANCRELIPASE PROTEASE
     Dosage: 25,000 IU: 1-2-1-2 + 1 EXTRA CAPSULE OF 12,000 IF FATTY MEAL
  8. SODIUM CHLORIDE [Concomitant]
     Active Substance: SODIUM CHLORIDE
     Dosage: IN THE MORNING AND EVENING
  9. TOBI PODHALER [Concomitant]
     Active Substance: TOBRAMYCIN
     Dosage: 4 CAPSULES MORNING AND EVENING (ALTERNATING WITH TADIM EVERY OTHER MONTH)
  10. TARGOCID [Concomitant]
     Active Substance: TEICOPLANIN
     Indication: Infective pulmonary exacerbation of cystic fibrosis
  11. CEFTAZIDIME [Concomitant]
     Active Substance: CEFTAZIDIME
     Indication: Infective pulmonary exacerbation of cystic fibrosis
  12. DEKAS ESSENTIAL [Concomitant]
     Dosage: ONE CAPSULE PER DAY

REACTIONS (4)
  - Sensory disturbance [Recovering/Resolving]
  - Syncope [Unknown]
  - Lower respiratory tract congestion [Unknown]
  - Skin infection [Unknown]

NARRATIVE: CASE EVENT DATE: 20220326
